FAERS Safety Report 24796438 (Version 1)
Quarter: 2025Q1

REPORT INFORMATION
  Report Type: Spontaneous
  Country: US (occurrence: US)
  Receive Date: 20250101
  Receipt Date: 20250101
  Transmission Date: 20250408
  Serious: Yes (Hospitalization)
  Sender: SANOFI AVENTIS
  Company Number: US-SA-2024SA385529

PATIENT
  Age: 77 Year
  Sex: Female
  Weight: 83.18 kg

DRUGS (1)
  1. DUPIXENT [Suspect]
     Active Substance: DUPILUMAB
     Indication: Angina pectoris
     Dosage: 300 MG, QOW
     Route: 058

REACTIONS (3)
  - Peripheral swelling [Unknown]
  - Skin weeping [Unknown]
  - Product use in unapproved indication [Unknown]

NARRATIVE: CASE EVENT DATE: 20241226
